FAERS Safety Report 6573646-2 (Version None)
Quarter: 2010Q1

REPORT INFORMATION
  Report Type: 
  Country: None (occurrence: None)
  Receive Date: 20100208
  Receipt Date: 20100128
  Transmission Date: 20100710
  Serious: Yes (Hospitalization)
  Sender: FDA-Public Use
  Company Number: US-JNJFOC-20100200209

PATIENT
  Sex: Female

DRUGS (1)
  1. SIMPONI [Suspect]
     Indication: RHEUMATOID ARTHRITIS
     Dosage: PATIENT RECEIVED THREE DOSES FROM UNK-2009.
     Route: 058

REACTIONS (5)
  - HALLUCINATION [None]
  - NASAL DISCOMFORT [None]
  - PAIN [None]
  - PSYCHOTIC DISORDER [None]
  - RASH VESICULAR [None]
